FAERS Safety Report 8813275 (Version 1)
Quarter: 2012Q4

REPORT INFORMATION
  Report Type: 
  Country: US (occurrence: US)
  Receive Date: 20120927
  Receipt Date: 20120927
  Transmission Date: 20130627
  Serious: No
  Sender: FDA-Public Use
  Company Number: US-AMGEN-USASP2012039582

PATIENT
  Age: 78 Year
  Sex: Female
  Weight: 63 kg

DRUGS (1)
  1. PROLIA [Suspect]
     Indication: OSTEOPOROSIS POSTMENOPAUSAL
     Dosage: 60 mg, UNK
     Route: 058
     Dates: start: 20110603, end: 20120603

REACTIONS (5)
  - Arthritis [Recovered/Resolved]
  - Feeling abnormal [Unknown]
  - Muscle spasms [Recovered/Resolved]
  - Lung infection [Unknown]
  - Bone pain [Recovered/Resolved]
